FAERS Safety Report 16702738 (Version 1)
Quarter: 2019Q3

REPORT INFORMATION
  Report Type: Spontaneous
  Country: IE (occurrence: IE)
  Receive Date: 20190814
  Receipt Date: 20190814
  Transmission Date: 20191004
  Serious: Yes (Other)
  Sender: FDA-Public Use
  Company Number: IE-MYLANLABS-2019M1075988

PATIENT
  Age: 2 Year
  Sex: Female

DRUGS (6)
  1. BETAMETHASONE. [Suspect]
     Active Substance: BETAMETHASONE
     Indication: ECZEMA
     Route: 061
  2. DEXAMETHASONE. [Suspect]
     Active Substance: DEXAMETHASONE
     Indication: ECZEMA
     Dosage: HOMEOPATHIC MEDICINES FROM PAKISTAN
     Route: 061
  3. HYDROCORTISONE. [Suspect]
     Active Substance: HYDROCORTISONE
     Indication: ECZEMA
     Route: 061
  4. PREDNISOLONE. [Concomitant]
     Active Substance: PREDNISOLONE
     Indication: FOOD ALLERGY
     Route: 048
  5. CLOBETASONE [Suspect]
     Active Substance: CLOBETASONE
     Indication: ECZEMA
     Route: 061
  6. BETAMETHASONE. [Suspect]
     Active Substance: BETAMETHASONE
     Indication: ECZEMA
     Dosage: HOMEOPATHIC MEDICINES FROM PAKISTAN
     Route: 061

REACTIONS (5)
  - Skin striae [Recovering/Resolving]
  - Hypertrichosis [Recovered/Resolved]
  - Intentional product misuse [Recovering/Resolving]
  - Adrenal suppression [Recovered/Resolved]
  - Weight increased [Recovered/Resolved]
